FAERS Safety Report 21996379 (Version 1)
Quarter: 2023Q1

REPORT INFORMATION
  Report Type: Report from Study
  Country: IT (occurrence: IT)
  Receive Date: 20230215
  Receipt Date: 20230215
  Transmission Date: 20230418
  Serious: Yes (Other)
  Sender: FDA-Public Use
  Company Number: IT-GLAXOSMITHKLINE-IT2023GSK021697

PATIENT

DRUGS (1)
  1. BELIMUMAB [Suspect]
     Active Substance: BELIMUMAB
     Indication: Systemic lupus erythematosus
     Dosage: UNK

REACTIONS (2)
  - Abortion spontaneous [Unknown]
  - Foetal exposure during pregnancy [Unknown]
